FAERS Safety Report 15209932 (Version 1)
Quarter: 2018Q3

REPORT INFORMATION
  Report Type: Spontaneous
  Country: US (occurrence: US)
  Receive Date: 20180727
  Receipt Date: 20180727
  Transmission Date: 20181010
  Serious: Yes (Other)
  Sender: FDA-Public Use
  Company Number: US-MYLANLABS-2018M1056096

PATIENT
  Age: 20 Year
  Sex: Female

DRUGS (11)
  1. PREDNISONE. [Interacting]
     Active Substance: PREDNISONE
     Indication: IMMUNOSUPPRESSANT DRUG THERAPY
     Dosage: 10 MG, LATER, DOSE TAPERED
     Route: 048
  2. ISAVUCONAZOLE [Interacting]
     Active Substance: ISAVUCONAZOLE
     Indication: INFECTION
     Dosage: MAINTENANCE DOSE (24 HOURS AFTER LOADING DOSE; GIVEN INTRAVENOUSLY OVER 1 HOUR): ISAVUCONAZONIUM ...
     Route: 041
  3. MYCOPHENOLATE MOFETIL. [Concomitant]
     Active Substance: MYCOPHENOLATE MOFETIL
     Indication: IMMUNOSUPPRESSANT DRUG THERAPY
     Dosage: 750 MG
     Route: 048
  4. VORICONAZOLE. [Suspect]
     Active Substance: VORICONAZOLE
     Indication: ANTIFUNGAL TREATMENT
     Dosage: 150 MG
     Route: 042
  5. METHYLPREDNISOLONE. [Interacting]
     Active Substance: METHYLPREDNISOLONE
     Indication: IMMUNOSUPPRESSANT DRUG THERAPY
     Dosage: 125 MG, Q8H, RECEIVED THREE DOSES, AND LATER SWITCHED TO PREDNISONE
     Route: 042
  6. ISAVUCONAZOLE [Interacting]
     Active Substance: ISAVUCONAZOLE
     Indication: ASPERGILLUS INFECTION
     Dosage: LOADING DOSE (6 DOSES, GIVEN INTRAVENOUSLY OVER 1 HOUR): ISAVUCONAZONIUM SULFATE 372 MG (EQUIVALE...
     Route: 041
  7. AMIKACIN. [Concomitant]
     Active Substance: AMIKACIN
     Indication: ANTIBIOTIC THERAPY
     Dosage: DOSED BASED ON TDM WITH A GOAL PEAK OF 60 MCG/ML
     Route: 065
  8. TACROLIMUS. [Concomitant]
     Active Substance: TACROLIMUS
     Indication: IMMUNOSUPPRESSANT DRUG THERAPY
     Dosage: DOSED BASED ON TDM WITH GOAL 12?HOUR TROUGH OF 8?12 NG/ML
     Route: 065
  9. AVIBACTAM W/CEFTAZIDIME [Concomitant]
     Active Substance: AVIBACTAM SODIUM\CEFTAZIDIME
     Indication: ANTIBIOTIC THERAPY
     Dosage: 2.5 G, Q8H
     Route: 042
  10. BASILIXIMAB [Concomitant]
     Active Substance: BASILIXIMAB
     Indication: IMMUNOSUPPRESSANT DRUG THERAPY
     Dosage: 20 MG, POST?OPERATIVE DAY 1 AND 5
     Route: 042
  11. LINEZOLID. [Concomitant]
     Active Substance: LINEZOLID
     Indication: ANTIBIOTIC THERAPY
     Dosage: 600 MG
     Route: 042

REACTIONS (3)
  - Drug interaction [Unknown]
  - Drug level increased [Unknown]
  - Drug level decreased [Unknown]
